FAERS Safety Report 24346196 (Version 1)
Quarter: 2024Q3

REPORT INFORMATION
  Report Type: Spontaneous
  Country: US (occurrence: US)
  Receive Date: 20240921
  Receipt Date: 20240921
  Transmission Date: 20241017
  Serious: No
  Sender: AUROBINDO
  Company Number: US-AUROBINDO-AUR-APL-2024-023266

PATIENT
  Age: 80 Year
  Sex: Female

DRUGS (1)
  1. ALENDRONATE SODIUM [Suspect]
     Active Substance: ALENDRONATE SODIUM
     Indication: Osteoporosis
     Dosage: UNK (SHE HAS TAKEN FOUR PILLS PER ONE WEEK)
     Route: 065
     Dates: start: 20240407

REACTIONS (6)
  - Arthralgia [Unknown]
  - Bone pain [Unknown]
  - Blood calcium decreased [Unknown]
  - Muscle spasms [Unknown]
  - Pain in jaw [Unknown]
  - Pain in extremity [Unknown]
